FAERS Safety Report 7982017-3 (Version None)
Quarter: 2011Q4

REPORT INFORMATION
  Report Type: 
  Country: None (occurrence: None)
  Receive Date: 20111212
  Receipt Date: 20111130
  Transmission Date: 20120403
  Serious: Yes (Disabling)
  Sender: FDA-Public Use
  Company Number: 2011SP056637

PATIENT
  Age: 16 Year
  Sex: Male

DRUGS (3)
  1. VORICONAZOLE [Suspect]
     Indication: FUNGAL INFECTION
     Dosage: 300 MG;BID;PO, 400 MG;BID;PO, 600 MG;BID;PO
     Route: 048
  2. AMPHOTERICIN B [Concomitant]
  3. POSACONAZOLE [Suspect]
     Indication: FUNGAL INFECTION

REACTIONS (14)
  - MUSCULOSKELETAL PAIN [None]
  - SUBCUTANEOUS NODULE [None]
  - EXOSTOSIS [None]
  - DISEASE PROGRESSION [None]
  - FUNGAL INFECTION [None]
  - VITAMIN D DEFICIENCY [None]
  - BONE DISORDER [None]
  - BLOOD ALKALINE PHOSPHATASE INCREASED [None]
  - OEDEMA PERIPHERAL [None]
  - FATIGUE [None]
  - HYPERCALCAEMIA [None]
  - DRUG LEVEL DECREASED [None]
  - PAIN IN EXTREMITY [None]
  - TOXICITY TO VARIOUS AGENTS [None]
